FAERS Safety Report 11255214 (Version 2)
Quarter: 2016Q1

REPORT INFORMATION
  Report Type: Spontaneous
  Country: NO (occurrence: NO)
  Receive Date: 20150709
  Receipt Date: 20160322
  Transmission Date: 20160525
  Serious: Yes (Death)
  Sender: FDA-Public Use
  Company Number: NO-FRESENIUS KABI-FK201503141

PATIENT
  Age: 3 Decade
  Sex: Male

DRUGS (1)
  1. PROPOFOL (MANUFACTURER UNKNOWN) [Suspect]
     Active Substance: PROPOFOL
     Indication: STATUS EPILEPTICUS
     Route: 042
     Dates: start: 20150606, end: 20150609

REACTIONS (3)
  - Death [Fatal]
  - Overdose [Fatal]
  - Propofol infusion syndrome [Fatal]

NARRATIVE: CASE EVENT DATE: 20150609
